FAERS Safety Report 5386729-X (Version None)
Quarter: 2007Q3

REPORT INFORMATION
  Report Type: 
  Country: None (occurrence: None)
  Receive Date: 20070713
  Receipt Date: 20070709
  Transmission Date: 20080115
  Serious: Yes (Death)
  Sender: FDA-Public Use
  Company Number: US-ASTRAZENECA-2006UW08881

PATIENT
  Age: 75 Year
  Sex: Female

DRUGS (5)
  1. SEROQUEL [Suspect]
     Indication: SCHIZOPHRENIA
     Route: 048
     Dates: start: 20040601
  2. SEROQUEL [Suspect]
     Indication: BIPOLAR DISORDER
     Route: 048
     Dates: start: 20040601
  3. SEROQUEL [Suspect]
     Indication: OBSESSIVE-COMPULSIVE DISORDER
     Route: 048
     Dates: start: 20040601
  4. RISPERDAL [Suspect]
     Dates: start: 20040601
  5. ZYPREXA [Suspect]
     Dosage: 2.5 MG TO 7.5 MG
     Dates: start: 20000301, end: 20050101

REACTIONS (2)
  - DEATH [None]
  - DIABETES MELLITUS [None]
